FAERS Safety Report 18211060 (Version 1)
Quarter: 2020Q3

REPORT INFORMATION
  Report Type: Other
  Country: US (occurrence: US)
  Receive Date: 20200830
  Receipt Date: 20200830
  Transmission Date: 20201103
  Serious: Yes (Other)
  Sender: FDA-Public Use
  Company Number: US-ROCHE-2665039

PATIENT
  Sex: Female

DRUGS (1)
  1. OCREVUS [Suspect]
     Active Substance: OCRELIZUMAB
     Indication: MULTIPLE SCLEROSIS
     Dosage: DATE OF TREATMENT: 06/APR/2018, 01/MAY/2018, 02/NOV/2018, 14/MAY/2019 AND 19/NOV/2019.
     Route: 065

REACTIONS (2)
  - Off label use [Unknown]
  - Multiple sclerosis relapse [Unknown]
